FAERS Safety Report 14554563 (Version 5)
Quarter: 2019Q2

REPORT INFORMATION
  Report Type: Report from Study
  Country: BR (occurrence: BR)
  Receive Date: 20180220
  Receipt Date: 20190626
  Transmission Date: 20190711
  Serious: Yes (Life-Threatening, Other)
  Sender: FDA-Public Use
  Company Number: PHHY2016BR166637

PATIENT
  Age: 67 Year
  Sex: Male
  Weight: 83 kg

DRUGS (6)
  1. COSENTYX [Suspect]
     Active Substance: SECUKINUMAB
     Indication: PSORIATIC ARTHROPATHY
     Dosage: 300 MG, QW
     Route: 058
     Dates: start: 20161129
  2. COSENTYX [Suspect]
     Active Substance: SECUKINUMAB
     Dosage: 300 MG, QMO
     Route: 058
     Dates: start: 20170919
  3. COSENTYX [Suspect]
     Active Substance: SECUKINUMAB
     Dosage: 150 MG, QMO
     Route: 058
     Dates: end: 201710
  4. COSENTYX [Suspect]
     Active Substance: SECUKINUMAB
     Dosage: UNK
     Route: 065
     Dates: start: 20180609
  5. COSENTYX [Suspect]
     Active Substance: SECUKINUMAB
     Indication: PSORIASIS
     Dosage: 300 MG, QW
     Route: 058
     Dates: start: 20161122
  6. NEORAL [Suspect]
     Active Substance: CYCLOSPORINE
     Indication: PSORIASIS
     Dosage: TID
     Route: 065

REACTIONS (26)
  - Psoriatic arthropathy [Unknown]
  - Depressed mood [Not Recovered/Not Resolved]
  - Renal disorder [Unknown]
  - Contusion [Not Recovered/Not Resolved]
  - Mass [Unknown]
  - Insomnia [Unknown]
  - Skin burning sensation [Not Recovered/Not Resolved]
  - Skin injury [Recovering/Resolving]
  - Dandruff [Unknown]
  - Apparent death [Unknown]
  - Wound [Unknown]
  - Pain [Not Recovered/Not Resolved]
  - Malaise [Unknown]
  - Anxiety [Unknown]
  - Injury [Unknown]
  - Incorrect dose administered [Unknown]
  - Nervousness [Unknown]
  - Pruritus [Unknown]
  - Skin papilloma [Unknown]
  - Feeling abnormal [Recovered/Resolved]
  - Skin exfoliation [Not Recovered/Not Resolved]
  - Suicidal ideation [Unknown]
  - Weight decreased [Unknown]
  - Psoriasis [Not Recovered/Not Resolved]
  - Blister [Unknown]
  - Feeling of despair [Unknown]

NARRATIVE: CASE EVENT DATE: 20161129
